FAERS Safety Report 24305889 (Version 1)
Quarter: 2024Q3

REPORT INFORMATION
  Report Type: Report from Study
  Country: CN (occurrence: CN)
  Receive Date: 20240911
  Receipt Date: 20240911
  Transmission Date: 20241017
  Serious: Yes (Hospitalization, Other)
  Sender: RANBAXY
  Company Number: CN-SUN PHARMACEUTICAL INDUSTRIES LTD-2024R1-467021

PATIENT
  Age: 24 Year
  Sex: Male

DRUGS (16)
  1. CLINDAMYCIN [Suspect]
     Active Substance: CLINDAMYCIN
     Indication: Cough
     Dosage: UNK
     Route: 042
  2. CLINDAMYCIN [Suspect]
     Active Substance: CLINDAMYCIN
     Indication: Productive cough
  3. CYTARABINE [Suspect]
     Active Substance: CYTARABINE
     Indication: Cough
     Dosage: UNK
     Route: 042
  4. CYTARABINE [Suspect]
     Active Substance: CYTARABINE
     Indication: Productive cough
  5. DEXAMETHASONE [Concomitant]
     Active Substance: DEXAMETHASONE
     Indication: Erythema
     Route: 065
  6. DEXAMETHASONE [Concomitant]
     Active Substance: DEXAMETHASONE
     Indication: Mucosal erosion
  7. TICARCILLIN DISODIUM [Concomitant]
     Active Substance: TICARCILLIN DISODIUM
     Indication: Erythema
     Dosage: UNK
     Route: 065
  8. TICARCILLIN DISODIUM [Concomitant]
     Active Substance: TICARCILLIN DISODIUM
     Indication: Mucosal erosion
  9. CLAVULANATE POTASSIUM [Concomitant]
     Active Substance: CLAVULANATE POTASSIUM
     Indication: Erythema
     Dosage: UNK
     Route: 065
  10. CLAVULANATE POTASSIUM [Concomitant]
     Active Substance: CLAVULANATE POTASSIUM
     Indication: Mucosal erosion
  11. ACYCLOVIR [Concomitant]
     Active Substance: ACYCLOVIR
     Indication: Erythema
     Route: 065
  12. ACYCLOVIR [Concomitant]
     Active Substance: ACYCLOVIR
     Indication: Mucosal erosion
  13. METHYLPREDNISOLONE [Concomitant]
     Active Substance: METHYLPREDNISOLONE
     Indication: Erythema
     Dosage: UNK
     Route: 065
  14. METHYLPREDNISOLONE [Concomitant]
     Active Substance: METHYLPREDNISOLONE
     Indication: Mucosal erosion
  15. AMIKACIN [Concomitant]
     Active Substance: AMIKACIN
     Indication: Erythema
     Dosage: UNK
     Route: 065
  16. AMIKACIN [Concomitant]
     Active Substance: AMIKACIN
     Indication: Mucosal erosion

REACTIONS (2)
  - Toxic epidermal necrolysis [Recovering/Resolving]
  - Sepsis [Unknown]
